FAERS Safety Report 13991760 (Version 1)
Quarter: 2017Q3

REPORT INFORMATION
  Report Type: Spontaneous
  Country: US (occurrence: US)
  Receive Date: 20170920
  Receipt Date: 20170920
  Transmission Date: 20171128
  Serious: No
  Sender: FDA-Public Use
  Company Number: US-RECKITT BENCKISER HEALTHCARE INT LIMITED-RB-89726-2017

PATIENT
  Sex: Female

DRUGS (3)
  1. MUCINEX [Suspect]
     Active Substance: GUAIFENESIN
     Dosage: 600 MG, SINGLE
     Route: 065
     Dates: start: 201705
  2. MUCINEX [Suspect]
     Active Substance: GUAIFENESIN
     Indication: PRODUCT USED FOR UNKNOWN INDICATION
     Dosage: 600 MG, BID
     Route: 065
     Dates: start: 20170526, end: 201705
  3. MUCINEX [Suspect]
     Active Substance: GUAIFENESIN
     Dosage: 600 MG, BID, , AFTER FEW DOSE STARTED TO TAKE THE TWO TABLETS AGAIN.
     Route: 065
     Dates: start: 201705, end: 201705

REACTIONS (1)
  - Hunger [Recovered/Resolved]
